FAERS Safety Report 21097037 (Version 4)
Quarter: 2025Q3

REPORT INFORMATION
  Report Type: Report from Study
  Country: CA (occurrence: CA)
  Receive Date: 20220718
  Receipt Date: 20250916
  Transmission Date: 20251020
  Serious: Yes (Other)
  Sender: AMGEN
  Company Number: CA-002147023-NVSC2021CA174659

PATIENT
  Age: 54 Year
  Sex: Female

DRUGS (3)
  1. AIMOVIG [Suspect]
     Active Substance: ERENUMAB-AOOE
     Indication: Migraine
     Route: 040
     Dates: start: 20191025
  2. AIMOVIG [Suspect]
     Active Substance: ERENUMAB-AOOE
     Route: 040
  3. AIMOVIG [Suspect]
     Active Substance: ERENUMAB-AOOE
     Route: 065

REACTIONS (3)
  - Plasma cell myeloma [Unknown]
  - Drug ineffective [Unknown]
  - Migraine [Unknown]
